FAERS Safety Report 6123694-1 (Version None)
Quarter: 2009Q1

REPORT INFORMATION
  Report Type: 
  Country: None (occurrence: None)
  Receive Date: 20090319
  Receipt Date: 20090311
  Transmission Date: 20090719
  Serious: Yes (Hospitalization)
  Sender: FDA-Public Use
  Company Number: US-CELGENEUS-163-21880-09021543

PATIENT
  Sex: Male

DRUGS (2)
  1. REVLIMID [Suspect]
     Indication: GLIOBLASTOMA
     Route: 048
     Dates: start: 20090118, end: 20090219
  2. IRINOTECAN HCL [Suspect]
     Indication: GLIOBLASTOMA
     Route: 051
     Dates: start: 20090112, end: 20090209

REACTIONS (2)
  - CEREBRAL HAEMORRHAGE [None]
  - CONVULSION [None]
